FAERS Safety Report 5984200-5 (Version None)
Quarter: 2008Q4

REPORT INFORMATION
  Report Type: 
  Country: None (occurrence: None)
  Receive Date: 20081208
  Receipt Date: 20080922
  Transmission Date: 20090506
  Serious: Yes (Hospitalization)
  Sender: FDA-Public Use
  Company Number: JP-ROCHE-587730

PATIENT
  Sex: Female

DRUGS (11)
  1. LUPRAC [Suspect]
     Indication: CARDIAC FAILURE
     Route: 048
     Dates: start: 20080501, end: 20080709
  2. DEPAS [Suspect]
     Indication: INSOMNIA
     Route: 048
     Dates: start: 20040401, end: 20080708
  3. MICARDIS [Suspect]
     Indication: HYPERTENSION
     Route: 048
     Dates: start: 20061201, end: 20080709
  4. OPALMON [Concomitant]
     Route: 048
     Dates: start: 20040401
  5. CEROCRAL [Concomitant]
     Route: 048
     Dates: start: 20040401
  6. ROCALTROL [Concomitant]
     Route: 048
     Dates: start: 20040401
  7. ITOROL [Concomitant]
     Route: 048
     Dates: start: 20040701
  8. MAALOX [Concomitant]
     Route: 048
     Dates: start: 20040901
  9. HERBESSER R [Concomitant]
     Route: 048
     Dates: start: 20051001
  10. SIGMART [Concomitant]
     Route: 048
     Dates: start: 20051201
  11. LASIX [Concomitant]
     Route: 048
     Dates: start: 20080301

REACTIONS (1)
  - RHABDOMYOLYSIS [None]
